FAERS Safety Report 9830690 (Version 1)
Quarter: 2014Q1

REPORT INFORMATION
  Report Type: Spontaneous
  Country: US (occurrence: US)
  Receive Date: 20140120
  Receipt Date: 20140120
  Transmission Date: 20141002
  Serious: Yes (Other)
  Sender: FDA-Public Use
  Company Number: US-ELI_LILLY_AND_COMPANY-US201401004552

PATIENT
  Age: 52 Year
  Sex: Female

DRUGS (1)
  1. EFFIENT [Suspect]
     Dosage: 10 MG, QD
     Route: 065

REACTIONS (2)
  - Chest pain [Unknown]
  - Platelet function test abnormal [Unknown]
